FAERS Safety Report 11976590 (Version 1)
Quarter: 2016Q1

REPORT INFORMATION
  Report Type: Spontaneous
  Country: JP (occurrence: JP)
  Receive Date: 20160129
  Receipt Date: 20160129
  Transmission Date: 20160526
  Serious: Yes (Hospitalization)
  Sender: FDA-Public Use
  Company Number: JP-EISAI MEDICAL RESEARCH-EC-2016-013936

PATIENT
  Age: 86 Year
  Sex: Male

DRUGS (1)
  1. ARICEPT [Suspect]
     Active Substance: DONEPEZIL HYDROCHLORIDE
     Indication: COGNITIVE DISORDER
     Route: 048

REACTIONS (2)
  - Rhabdomyolysis [Recovered/Resolved]
  - Decreased appetite [Recovered/Resolved]
